FAERS Safety Report 4952672-0 (Version None)
Quarter: 2006Q1

REPORT INFORMATION
  Report Type: 
  Country: None (occurrence: None)
  Receive Date: 20060324
  Receipt Date: 20060301
  Transmission Date: 20060701
  Serious: Yes (Hospitalization)
  Sender: FDA-Public Use
  Company Number: DE-ABBOTT-06P-062-0326671-00

PATIENT
  Sex: Female
  Weight: 65 kg

DRUGS (5)
  1. KLACID FILMTABLETTEN [Suspect]
     Indication: SUICIDE ATTEMPT
     Route: 048
     Dates: start: 20060228, end: 20060228
  2. ETHANOL [Suspect]
     Indication: SUICIDE ATTEMPT
     Route: 048
     Dates: start: 20060228, end: 20060228
  3. BACTRIM [Suspect]
     Indication: SUICIDE ATTEMPT
     Route: 048
     Dates: start: 20060228, end: 20060228
  4. CYSTINOL [Suspect]
     Indication: SUICIDE ATTEMPT
     Route: 048
     Dates: start: 20060228, end: 20060228
  5. METOPROLOL TARTRATE [Suspect]
     Indication: SUICIDE ATTEMPT
     Route: 048
     Dates: start: 20060228, end: 20060228

REACTIONS (2)
  - FATIGUE [None]
  - SUICIDE ATTEMPT [None]
